FAERS Safety Report 14412393 (Version 1)
Quarter: 2018Q1

REPORT INFORMATION
  Report Type: Spontaneous
  Country: US (occurrence: US)
  Receive Date: 20180119
  Receipt Date: 20180119
  Transmission Date: 20180509
  Serious: Yes (Life-Threatening, Other)
  Sender: FDA-Public Use
  Company Number: US-AMGEN-USASP2018007009

PATIENT
  Age: 76 Year
  Sex: Female

DRUGS (1)
  1. PROLIA [Suspect]
     Active Substance: DENOSUMAB
     Indication: OSTEOPOROSIS POSTMENOPAUSAL
     Dosage: 60 MG, UNK
     Route: 065
     Dates: start: 20170727

REACTIONS (10)
  - Nasopharyngitis [Unknown]
  - Dyspnoea exertional [Unknown]
  - Gait inability [Unknown]
  - Groin pain [Unknown]
  - Chest pain [Unknown]
  - Pain in extremity [Unknown]
  - Apparent death [Unknown]
  - Mobility decreased [Unknown]
  - Pulmonary congestion [Unknown]
  - Arthralgia [Unknown]

NARRATIVE: CASE EVENT DATE: 201707
